FAERS Safety Report 8349305-2 (Version None)
Quarter: 2012Q2

REPORT INFORMATION
  Report Type: 
  Country: None (occurrence: None)
  Receive Date: 20120510
  Receipt Date: 20120425
  Transmission Date: 20120825
  Serious: Yes (Other)
  Sender: FDA-Public Use
  Company Number: US-PAR PHARMACEUTICAL, INC-2012SCPR004354

PATIENT

DRUGS (6)
  1. CAFFEINE CITRATE [Concomitant]
     Indication: PRODUCT USED FOR UNKNOWN INDICATION
     Dosage: UNK, UNKNOWN
     Route: 065
  2. TESTOSTERONE [Suspect]
     Dosage: UNK, WEEKLY INJECTIONS
     Route: 051
  3. CLOMIPHENE CITRATE [Concomitant]
     Indication: PRODUCT USED FOR UNKNOWN INDICATION
     Dosage: UNK, UNKNOWN
     Route: 065
  4. HUMAN GROWTH HORMONE, RECOMBINANT [Concomitant]
     Indication: PRODUCT USED FOR UNKNOWN INDICATION
     Dosage: UNK, UNKNOWN
     Route: 065
  5. TESTOSTERONE [Suspect]
     Indication: PRODUCT USED FOR UNKNOWN INDICATION
     Dosage: UNK, DAILY INJECTIONS
     Route: 051
  6. PRIMOBOLAN-DEPOT INJ [Suspect]
     Indication: PRODUCT USED FOR UNKNOWN INDICATION
     Dosage: UNK, UNKNOWN
     Route: 065

REACTIONS (11)
  - DRUG ABUSE [None]
  - LEFT VENTRICULAR HYPERTROPHY [None]
  - GYNAECOMASTIA [None]
  - DIARRHOEA [None]
  - EJECTION FRACTION DECREASED [None]
  - ANXIETY [None]
  - BLOOD FOLLICLE STIMULATING HORMONE DECREASED [None]
  - BLOOD LUTEINISING HORMONE DECREASED [None]
  - FLUSHING [None]
  - HYPERTENSION [None]
  - DYSLIPIDAEMIA [None]
